FAERS Safety Report 24857048 (Version 1)
Quarter: 2025Q1

REPORT INFORMATION
  Report Type: Spontaneous
  Country: US (occurrence: None)
  Receive Date: 20250117
  Receipt Date: 20250117
  Transmission Date: 20250408
  Serious: No
  Sender: FDA-CTU
  Company Number: None

PATIENT
  Sex: Female

DRUGS (4)
  1. MAYZENT [Suspect]
     Active Substance: SIPONIMOD
     Indication: Multiple sclerosis
     Dosage: FREQUENCY : DAILY;?
     Dates: start: 20240719
  2. COVID-19 RAP KIT 1-PACK [Concomitant]
  3. CYCLOBENZAPR TAB 7.5MG [Concomitant]
  4. ERGOT/CAFFEN TAB 1-100MG [Concomitant]

REACTIONS (3)
  - Fall [None]
  - Muscular weakness [None]
  - Foot fracture [None]
